FAERS Safety Report 15654941 (Version 3)
Quarter: 2018Q4

REPORT INFORMATION
  Report Type: Report from Study
  Country: AT (occurrence: AT)
  Receive Date: 20181126
  Receipt Date: 20181210
  Transmission Date: 20190205
  Serious: Yes (Hospitalization)
  Sender: FDA-Public Use
  Company Number: AT-ROCHE-2214160

PATIENT
  Age: 78 Year
  Sex: Female
  Weight: 48 kg

DRUGS (17)
  1. PERTUZUMAB. [Suspect]
     Active Substance: PERTUZUMAB
     Indication: HER-2 POSITIVE BREAST CANCER
     Dosage: MOST RECENT DOSE PRIOR TO THE EVENT: 31/AUG/2018
     Route: 042
     Dates: start: 20180810, end: 20180810
  2. ABRAXANE [Suspect]
     Active Substance: PACLITAXEL
     Indication: BREAST CANCER
     Route: 042
     Dates: start: 20180928
  3. PARKEMED [Concomitant]
     Active Substance: MEFENAMIC ACID
     Indication: ARTHRALGIA
     Route: 065
     Dates: start: 20180914
  4. KYTRIL [Concomitant]
     Active Substance: GRANISETRON HYDROCHLORIDE
     Route: 065
     Dates: start: 20180928
  5. TRITTICO [Concomitant]
     Active Substance: TRAZODONE HYDROCHLORIDE
     Route: 065
  6. CLAVERSAL [Concomitant]
     Active Substance: MESALAMINE
     Dosage: ONGOING = CHECKED
     Route: 065
  7. ANTIFLAT [Concomitant]
     Route: 065
     Dates: start: 20181126
  8. TEMESTA (AUSTRIA) [Concomitant]
     Dosage: ONGOING = CHECKED
     Route: 065
  9. XGEVA [Concomitant]
     Active Substance: DENOSUMAB
     Route: 065
     Dates: start: 20180817
  10. ZOFRAN [Concomitant]
     Active Substance: ONDANSETRON HYDROCHLORIDE
     Indication: NAUSEA
     Route: 065
     Dates: start: 20180907
  11. PARKEMED [Concomitant]
     Active Substance: MEFENAMIC ACID
     Route: 065
  12. PARKEMED [Concomitant]
     Active Substance: MEFENAMIC ACID
     Indication: ARTHRALGIA
     Route: 065
     Dates: start: 20181019
  13. ENTEROBENE [Concomitant]
     Indication: DIARRHOEA
     Route: 065
     Dates: start: 20181012, end: 20181117
  14. FEMARA [Suspect]
     Active Substance: LETROZOLE
     Indication: BREAST CANCER
     Route: 048
     Dates: start: 20181029
  15. TRASTUZUMAB. [Suspect]
     Active Substance: TRASTUZUMAB
     Indication: HER-2 POSITIVE BREAST CANCER
     Dosage: MOST RECENT DOSE PRIOR TO THE EVENT: 09/NOV/2018
     Route: 042
     Dates: start: 20180810, end: 20180810
  16. ABRAXANE [Suspect]
     Active Substance: PACLITAXEL
     Dosage: MOST RECENT DOSE PRIOR TO THE EVENT: 19/OCT/2018
     Route: 042
     Dates: start: 20181005
  17. CALCIDURAN [Concomitant]
     Indication: GASTROENTERITIS RADIATION
     Route: 065
     Dates: start: 20181117, end: 20181118

REACTIONS (2)
  - Abdominal pain upper [Not Recovered/Not Resolved]
  - Gastroenteritis radiation [Recovered/Resolved]

NARRATIVE: CASE EVENT DATE: 20181109
